FAERS Safety Report 22015563 (Version 2)
Quarter: 2023Q1

REPORT INFORMATION
  Report Type: Spontaneous
  Country: GB (occurrence: GB)
  Receive Date: 20230221
  Receipt Date: 20230227
  Transmission Date: 20230417
  Serious: Yes (Disabling, Other)
  Sender: FDA-Public Use
  Company Number: GB-MHRA-MED-202203021132345360-RAO0P

PATIENT
  Age: 25 Year
  Sex: Female

DRUGS (2)
  1. MOMETASONE FUROATE [Suspect]
     Active Substance: MOMETASONE FUROATE
     Dosage: UNK, ADDITIONAL INFO: ROUTE:
  2. BETAMETHASONE [Concomitant]
     Active Substance: BETAMETHASONE
     Dosage: UNK

REACTIONS (2)
  - Medication error [Unknown]
  - Topical steroid withdrawal reaction [Recovering/Resolving]

NARRATIVE: CASE EVENT DATE: 20210301
